FAERS Safety Report 4296409-X (Version None)
Quarter: 2004Q1

REPORT INFORMATION
  Report Type: 
  Country: None (occurrence: None)
  Receive Date: 20040213
  Receipt Date: 20040213
  Transmission Date: 20041129
  Serious: No
  Sender: FDA-Public Use
  Company Number: None

PATIENT
  Age: 22 Year
  Sex: Female
  Weight: 81.6475 kg

DRUGS (1)
  1. DEPO-PROVERA [Suspect]
     Indication: CONTRACEPTION
     Dosage: 1 EVERY 3 MO INTRAMUSCULAR
     Route: 030
     Dates: start: 20020823, end: 20031023

REACTIONS (8)
  - DEPRESSION [None]
  - HEADACHE [None]
  - HORMONE LEVEL ABNORMAL [None]
  - HOT FLUSH [None]
  - INSOMNIA [None]
  - MYALGIA [None]
  - NIGHT SWEATS [None]
  - WEIGHT INCREASED [None]
